FAERS Safety Report 8370081-1 (Version None)
Quarter: 2012Q2

REPORT INFORMATION
  Report Type: 
  Country: None (occurrence: None)
  Receive Date: 20120518
  Receipt Date: 20120507
  Transmission Date: 20120825
  Serious: Yes (Other)
  Sender: FDA-Public Use
  Company Number: US-JNJFOC-20120512021

PATIENT
  Age: 20 Year
  Sex: Male

DRUGS (8)
  1. ETOPOSIDE [Suspect]
     Indication: EWING'S SARCOMA
     Route: 042
  2. FILGRASTIM [Suspect]
     Indication: EWING'S SARCOMA
     Route: 058
  3. DOXORUBICIN HCL [Suspect]
     Indication: EWING'S SARCOMA
     Route: 042
  4. CYCLOPHOSPHAMIDE [Suspect]
     Indication: EWING'S SARCOMA
     Route: 042
  5. VINCRISTINE [Suspect]
     Indication: EWING'S SARCOMA
     Route: 042
  6. PREDNISONE [Suspect]
     Indication: EWING'S SARCOMA
     Route: 048
  7. FLUDARABINE PHOSPHATE [Suspect]
     Indication: EWING'S SARCOMA
     Route: 042
  8. CYCLOSPORINE [Suspect]
     Indication: PROPHYLAXIS AGAINST GRAFT VERSUS HOST DISEASE
     Route: 065

REACTIONS (7)
  - OFF LABEL USE [None]
  - CHRONIC GRAFT VERSUS HOST DISEASE [None]
  - NEOPLASM PROGRESSION [None]
  - HEPATOTOXICITY [None]
  - EWING'S SARCOMA [None]
  - MUCOSAL INFLAMMATION [None]
  - OESOPHAGITIS [None]
